FAERS Safety Report 7126102-7 (Version None)
Quarter: 2010Q4

REPORT INFORMATION
  Report Type: 
  Country: None (occurrence: None)
  Receive Date: 20101129
  Receipt Date: 20101117
  Transmission Date: 20110411
  Serious: Yes (Hospitalization, Other)
  Sender: FDA-Public Use
  Company Number: ES-ROCHE-742751

PATIENT
  Age: 6 Month
  Sex: Male
  Weight: 7 kg

DRUGS (6)
  1. OSELTAMIVIR [Suspect]
     Dosage: STOPPED AFTER 33 DAYS OF TREATMENT.
     Route: 065
     Dates: start: 20050101
  2. OSELTAMIVIR [Suspect]
     Dosage: GIVEN FOR 15 DAYS
     Route: 065
  3. OSELTAMIVIR [Suspect]
     Route: 065
     Dates: start: 20050901, end: 20051101
  4. AMANTADINE [Suspect]
     Route: 065
     Dates: start: 20050101, end: 20050101
  5. AMANTADINE [Suspect]
     Dosage: FOR 15 DAYS
     Route: 065
  6. AMANTADINE [Suspect]
     Route: 065
     Dates: start: 20050901, end: 20051101

REACTIONS (5)
  - DRUG RESISTANCE [None]
  - GRAFT VERSUS HOST DISEASE [None]
  - NEUROTOXICITY [None]
  - PATHOGEN RESISTANCE [None]
  - RESPIRATORY FAILURE [None]
